FAERS Safety Report 15724181 (Version 2)
Quarter: 2018Q4

REPORT INFORMATION
  Report Type: Spontaneous
  Country: IR (occurrence: IR)
  Receive Date: 20181214
  Receipt Date: 20181228
  Transmission Date: 20190205
  Serious: Yes (Death, Hospitalization)
  Sender: FDA-Public Use
  Company Number: IR-FERRINGPH-2018FE07102

PATIENT

DRUGS (4)
  1. MENOTROPHIN [Suspect]
     Active Substance: MENOTROPINS
     Indication: ASSISTED FERTILISATION
     Dosage: 225 IU, DAILY
     Route: 065
  2. CHORIONIC GONADOTROPHIN [Suspect]
     Active Substance: CHORIOGONADOTROPIN ALFA
     Indication: ASSISTED FERTILISATION
     Dosage: 5000 IU, UNK
     Route: 065
  3. CHORIONIC GONADOTROPHIN [Suspect]
     Active Substance: CHORIOGONADOTROPIN ALFA
     Dosage: 75 IU, EVERY OTHER DAY
     Route: 065
  4. CABERGOLINE. [Suspect]
     Active Substance: CABERGOLINE
     Indication: ASSISTED FERTILISATION
     Dosage: 0.5 MG, TWICE PER WEEK
     Route: 065

REACTIONS (2)
  - Duodenal ulcer perforation [Fatal]
  - Ovarian hyperstimulation syndrome [Unknown]
